FAERS Safety Report 5401100-X (Version None)
Quarter: 2007Q3

REPORT INFORMATION
  Report Type: 
  Country: None (occurrence: None)
  Receive Date: 20070731
  Receipt Date: 20070725
  Transmission Date: 20080115
  Serious: Yes (Hospitalization)
  Sender: FDA-Public Use
  Company Number: PHEH2007US10435

PATIENT
  Sex: Female

DRUGS (1)
  1. DIOVAN [Suspect]
     Dosage: 80 MG, UNK
     Route: 048
     Dates: start: 20060201

REACTIONS (6)
  - ABDOMINAL PAIN [None]
  - ASTHENIA [None]
  - BLOOD SODIUM DECREASED [None]
  - FATIGUE [None]
  - HEADACHE [None]
  - HYPONATRAEMIA [None]
